FAERS Safety Report 10485770 (Version 2)
Quarter: 2014Q4

REPORT INFORMATION
  Report Type: Report from Study
  Country: US (occurrence: US)
  Receive Date: 20141001
  Receipt Date: 20141001
  Transmission Date: 20150528
  Serious: No
  Sender: FDA-Public Use
  Company Number: US-ROCHE-GNE201563

PATIENT
  Age: 6 Year
  Sex: Female
  Weight: 27.65 kg

DRUGS (3)
  1. ZOLOFT [Concomitant]
     Active Substance: SERTRALINE HYDROCHLORIDE
  2. NUTROPIN AQ [Suspect]
     Active Substance: SOMATROPIN
     Indication: GROWTH HORMONE DEFICIENCY
     Dosage: 1.2 MG, QD
     Route: 058
     Dates: start: 200306, end: 20030706
  3. NUTROPIN AQ [Suspect]
     Active Substance: SOMATROPIN
     Route: 058

REACTIONS (12)
  - Abdominal distension [Unknown]
  - Anxiety [Recovered/Resolved]
  - Fatigue [Unknown]
  - Depression [Recovered/Resolved]
  - Breath odour [Recovered/Resolved]
  - Menstruation irregular [Unknown]
  - Joint crepitation [Unknown]
  - Weight decreased [Unknown]
  - Emotional disorder [Unknown]
  - Chest pain [Unknown]
  - Nocturia [Unknown]
  - Headache [Unknown]

NARRATIVE: CASE EVENT DATE: 20030630
